FAERS Safety Report 9130218 (Version 1)
Quarter: 2013Q1

REPORT INFORMATION
  Report Type: Spontaneous
  Country: IT (occurrence: IT)
  Receive Date: 20130301
  Receipt Date: 20130301
  Transmission Date: 20140127
  Serious: Yes (Life-Threatening)
  Sender: FDA-Public Use
  Company Number: IT-MYLANLABS-2013S1003821

PATIENT
  Age: 77 Year
  Sex: Female
  Weight: 52 kg

DRUGS (9)
  1. CLOPIDOGREL [Suspect]
     Indication: PRODUCT USED FOR UNKNOWN INDICATION
     Dates: start: 20121212, end: 20130128
  2. PRITOR /01421801/ [Concomitant]
     Indication: PRODUCT USED FOR UNKNOWN INDICATION
     Dosage: 40 MG TABLETS
     Route: 048
  3. CORDARONE [Concomitant]
     Indication: PRODUCT USED FOR UNKNOWN INDICATION
  4. LASIX [Concomitant]
     Indication: PRODUCT USED FOR UNKNOWN INDICATION
  5. LUVION /00252501/ [Concomitant]
     Indication: PRODUCT USED FOR UNKNOWN INDICATION
  6. LANSOX [Concomitant]
     Indication: PRODUCT USED FOR UNKNOWN INDICATION
  7. SIVASTIN [Concomitant]
     Indication: PRODUCT USED FOR UNKNOWN INDICATION
  8. CARDIOASPIRIN [Concomitant]
     Indication: PRODUCT USED FOR UNKNOWN INDICATION
  9. CONGESCOR [Concomitant]
     Indication: PRODUCT USED FOR UNKNOWN INDICATION
     Dosage: 1.25 MG TABLETS

REACTIONS (5)
  - Agranulocytosis [Recovered/Resolved]
  - Neutropenia [Recovered/Resolved]
  - Cellulitis [Recovered/Resolved]
  - Pseudomonal sepsis [Recovered/Resolved]
  - Shock [Recovered/Resolved]
